FAERS Safety Report 17347373 (Version 1)
Quarter: 2020Q1

REPORT INFORMATION
  Report Type: Spontaneous
  Country: IL (occurrence: IL)
  Receive Date: 20200129
  Receipt Date: 20200129
  Transmission Date: 20200409
  Serious: No
  Sender: FDA-Public Use
  Company Number: IL-EXELIXIS-CABO-19022360

PATIENT
  Sex: Male

DRUGS (1)
  1. CABOMETYX [Suspect]
     Active Substance: CABOZANTINIB S-MALATE
     Indication: METASTATIC RENAL CELL CARCINOMA
     Dosage: 60 MG, UNK
     Dates: start: 201904

REACTIONS (11)
  - Stomatitis [Recovering/Resolving]
  - Pruritus [Recovering/Resolving]
  - Skin discolouration [Unknown]
  - Palmar-plantar erythrodysaesthesia syndrome [Recovering/Resolving]
  - Blood bilirubin abnormal [Recovering/Resolving]
  - Dry skin [Recovering/Resolving]
  - Fatigue [Unknown]
  - Hair colour changes [Recovering/Resolving]
  - Mass [Unknown]
  - Blood glucose increased [Recovering/Resolving]
  - Blood thyroid stimulating hormone increased [Recovering/Resolving]

NARRATIVE: CASE EVENT DATE: 201906
